FAERS Safety Report 8048685-5 (Version None)
Quarter: 2012Q1

REPORT INFORMATION
  Report Type: 
  Country: None (occurrence: None)
  Receive Date: 20120117
  Receipt Date: 20120109
  Transmission Date: 20120608
  Serious: Yes (Other)
  Sender: FDA-Public Use
  Company Number: US-JNJFOC-20111111893

PATIENT
  Sex: Female
  Weight: 90.72 kg

DRUGS (5)
  1. SIMPONI [Suspect]
     Indication: RHEUMATOID ARTHRITIS
     Route: 058
     Dates: start: 20060101
  2. VOLTAREN [Concomitant]
     Indication: ARTHRITIS
     Route: 048
     Dates: start: 19920101
  3. METHOTREXATE [Concomitant]
     Indication: ARTHRITIS
     Route: 048
     Dates: start: 19920101
  4. SIMPONI [Suspect]
     Indication: OSTEOARTHRITIS
     Route: 058
     Dates: start: 20060101
  5. FLEXERIL [Concomitant]
     Indication: MUSCLE SPASMS
     Route: 048
     Dates: start: 19920101

REACTIONS (8)
  - HYPOTENSION [None]
  - FLUID RETENTION [None]
  - HYPERTENSION [None]
  - OESOPHAGEAL SPASM [None]
  - DEVICE MALFUNCTION [None]
  - DRUG DOSE OMISSION [None]
  - PAIN IN EXTREMITY [None]
  - WEIGHT DECREASED [None]
